FAERS Safety Report 8153448-6 (Version None)
Quarter: 2012Q1

REPORT INFORMATION
  Report Type: 
  Country: None (occurrence: None)
  Receive Date: 20120215
  Receipt Date: 20120202
  Transmission Date: 20120608
  Serious: Yes (Other)
  Sender: FDA-Public Use
  Company Number: CIO11006037

PATIENT
  Age: 66 Year
  Sex: Female
  Weight: 63.5 kg

DRUGS (12)
  1. GLUCOSAMINE (GLUCOSAMINE) [Concomitant]
  2. LUNESTA [Concomitant]
  3. VAPORUB, REGULAR SCENT (CAMPHOR 143.07 MG, CEDAR LEAF OIL 20.4 MG, EUC [Suspect]
     Indication: SINUSITIS
     Dosage: MIXED IN WATER AND MICROWAVED, TOPICAL; 1 SPLASH, 1 ONLY OPTHALMIC
     Route: 061
     Dates: start: 20110207, end: 20110208
  4. VAPORUB, REGULAR SCENT (CAMPHOR 143.07 MG, CEDAR LEAF OIL 20.4 MG, EUC [Suspect]
     Indication: NASAL CONGESTION
     Dosage: MIXED IN WATER AND MICROWAVED, TOPICAL; 1 SPLASH, 1 ONLY OPTHALMIC
     Route: 061
     Dates: start: 20110207, end: 20110208
  5. ZYRTEC [Concomitant]
  6. VITAMINS /90003601/ [Concomitant]
  7. LISINOPRIL [Concomitant]
  8. FISH OIL (FISH OIL) [Concomitant]
  9. LORAZEPAM [Concomitant]
  10. FLUNISOLIDE (FLUNISOLIDE) [Concomitant]
  11. CALCIUM /00009901/ (CALCIUM CARBONATE, CALCIUM LACTOGLUCONATE) [Concomitant]
  12. ACYCLOVR /00587301/ (ACICLOVIR) [Concomitant]

REACTIONS (26)
  - BURNS SECOND DEGREE [None]
  - VISUAL IMPAIRMENT [None]
  - ERYTHEMA [None]
  - CONJUNCTIVAL OEDEMA [None]
  - EYE PAIN [None]
  - HEADACHE [None]
  - SCIATICA [None]
  - CORNEAL EPITHELIUM DEFECT [None]
  - EYE IRRITATION [None]
  - DRY EYE [None]
  - BLINDNESS TRANSIENT [None]
  - PERIORBITAL OEDEMA [None]
  - CHEMICAL BURNS OF EYE [None]
  - BLISTER [None]
  - VISUAL ACUITY REDUCED [None]
  - WRONG TECHNIQUE IN DRUG USAGE PROCESS [None]
  - PHOTOPHOBIA [None]
  - CONJUNCTIVAL HYPERAEMIA [None]
  - EYELID OEDEMA [None]
  - CORNEAL ABRASION [None]
  - BLOOD PRESSURE INCREASED [None]
  - CATARACT [None]
  - FACE OEDEMA [None]
  - BURNS FIRST DEGREE [None]
  - CATARACT TRAUMATIC [None]
  - EYE BURNS [None]
